FAERS Safety Report 23771237 (Version 3)
Quarter: 2024Q2

REPORT INFORMATION
  Report Type: Other
  Country: US (occurrence: None)
  Receive Date: 20240423
  Receipt Date: 20240430
  Transmission Date: 20240716
  Serious: Yes (Death)
  Sender: FDA-Public Use
  Company Number: US-ROCHE-3549320

PATIENT
  Age: 86 Year
  Sex: Male

DRUGS (1)
  1. ESBRIET [Suspect]
     Active Substance: PIRFENIDONE
     Indication: Idiopathic pulmonary fibrosis
     Dosage: THAN 2 TABLET THREE TIME A DAY AND 3 TABLET THREE TIMES DAY
     Route: 048
     Dates: start: 20230412, end: 20240412

REACTIONS (1)
  - Death [Fatal]
